FAERS Safety Report 10069448 (Version 1)
Quarter: 2014Q2

REPORT INFORMATION
  Report Type: Spontaneous
  Country: US (occurrence: US)
  Receive Date: 20140410
  Receipt Date: 20140410
  Transmission Date: 20141212
  Serious: No
  Sender: FDA-Public Use
  Company Number: US-009507513-1404USA002345

PATIENT
  Age: 18 Year
  Sex: Female
  Weight: 108.84 kg

DRUGS (3)
  1. NEXPLANON [Suspect]
     Indication: CONTRACEPTION
     Dosage: ONE ROD FOR 3 YEARS
     Route: 059
     Dates: start: 20140225
  2. VALTREX [Concomitant]
  3. NIFEDICAL [Concomitant]

REACTIONS (3)
  - Malaise [Unknown]
  - Menorrhagia [Recovered/Resolved]
  - Dizziness [Unknown]
